FAERS Safety Report 5147029-6 (Version None)
Quarter: 2006Q4

REPORT INFORMATION
  Report Type: 
  Country: None (occurrence: None)
  Receive Date: 20061109
  Receipt Date: 20061030
  Transmission Date: 20070319
  Serious: Yes (Other)
  Sender: FDA-Public Use
  Company Number: GB-ELI_LILLY_AND_COMPANY-GB200610005270

PATIENT
  Age: 43 Year
  Sex: Female
  Weight: 62 kg

DRUGS (2)
  1. FLUOXETINE [Suspect]
     Indication: DEPRESSION
     Dosage: 20 MG, UNK
     Route: 048
     Dates: start: 20050101, end: 20060601
  2. FLUOXETINE [Suspect]
     Dosage: 40 MG, UNK
     Route: 048
     Dates: start: 20060601

REACTIONS (2)
  - CONTUSION [None]
  - HAEMORRHAGE [None]
